FAERS Safety Report 7736573-0 (Version None)
Quarter: 2011Q3

REPORT INFORMATION
  Report Type: 
  Country: None (occurrence: None)
  Receive Date: 20110908
  Receipt Date: 20110830
  Transmission Date: 20111222
  Serious: Yes (Death, Hospitalization)
  Sender: FDA-Public Use
  Company Number: JP-SANOFI-AVENTIS-2011SA025396

PATIENT
  Age: 76 Year
  Sex: Male
  Weight: 39.7 kg

DRUGS (9)
  1. PRIMPERAN TAB [Concomitant]
     Indication: PROSTATE CANCER
     Route: 048
     Dates: start: 20031112, end: 20040726
  2. OXYCONTIN [Concomitant]
     Route: 048
     Dates: start: 20040720, end: 20040808
  3. ZANTAC [Concomitant]
     Indication: PREMEDICATION
  4. RAMELTEON [Concomitant]
     Indication: PREMEDICATION
  5. OXYCONTIN [Concomitant]
     Indication: PROSTATE CANCER
     Route: 048
     Dates: start: 20040705, end: 20040717
  6. TAXOTERE [Suspect]
     Indication: PROSTATE CANCER
     Dosage: FORM: DROPS
     Route: 042
     Dates: start: 20040702, end: 20040813
  7. DEXAMETHASONE [Concomitant]
     Indication: PREMEDICATION
  8. PARAPLATIN [Concomitant]
     Indication: PROSTATE CANCER
     Dosage: FORM: DROP
     Route: 042
     Dates: start: 20040702, end: 20040730
  9. OXYCONTIN [Concomitant]
     Route: 048
     Dates: start: 20040718, end: 20040719

REACTIONS (2)
  - DISEASE PROGRESSION [None]
  - DECREASED APPETITE [None]
